FAERS Safety Report 25490121 (Version 1)
Quarter: 2025Q2

REPORT INFORMATION
  Report Type: Spontaneous
  Country: US (occurrence: US)
  Receive Date: 20250628
  Receipt Date: 20250628
  Transmission Date: 20250717
  Serious: No
  Sender: SANOFI AVENTIS
  Company Number: US-SA-2025SA182958

PATIENT
  Age: 77 Year
  Sex: Female

DRUGS (15)
  1. DUPIXENT [Suspect]
     Active Substance: DUPILUMAB
     Indication: Dermatitis atopic
     Route: 058
     Dates: start: 20250327
  2. DOXYCYCLINE [Concomitant]
     Active Substance: DOXYCYCLINE
  3. METOPROLOL [Concomitant]
     Active Substance: METOPROLOL
  4. VITAMIN D NOS [Concomitant]
     Active Substance: CHOLECALCIFEROL\ERGOCALCIFEROL
  5. MELATONIN [Concomitant]
     Active Substance: MELATONIN
  6. PREDNISONE [Concomitant]
     Active Substance: PREDNISONE
  7. TRAMADOL [Concomitant]
     Active Substance: TRAMADOL
  8. POTASSIUM [Concomitant]
     Active Substance: POTASSIUM
  9. LISINOPRIL [Concomitant]
     Active Substance: LISINOPRIL
  10. DULOXETINE [Concomitant]
     Active Substance: DULOXETINE
  11. DIAZEPAM [Concomitant]
     Active Substance: DIAZEPAM
  12. TYLENOL [Concomitant]
     Active Substance: ACETAMINOPHEN
  13. ATORVASTATIN [Concomitant]
     Active Substance: ATORVASTATIN
  14. PANTOPRAZOLE [Concomitant]
     Active Substance: PANTOPRAZOLE
  15. TRAZODONE [Concomitant]
     Active Substance: TRAZODONE HYDROCHLORIDE

REACTIONS (4)
  - Oropharyngeal discomfort [Unknown]
  - Condition aggravated [Unknown]
  - Oral discomfort [Unknown]
  - Condition aggravated [Unknown]

NARRATIVE: CASE EVENT DATE: 20250625
